FAERS Safety Report 4975341-X (Version None)
Quarter: 2006Q2

REPORT INFORMATION
  Report Type: 
  Country: None (occurrence: None)
  Receive Date: 20060418
  Receipt Date: 20051220
  Transmission Date: 20061013
  Serious: Yes (Hospitalization)
  Sender: FDA-Public Use
  Company Number: US-MERCK-0512USA03256

PATIENT
  Age: 82 Year
  Sex: Male
  Weight: 81 kg

DRUGS (1)
  1. VIOXX [Suspect]
     Indication: ARTHRALGIA
     Route: 048
     Dates: start: 19990101, end: 20040101

REACTIONS (5)
  - ANXIETY [None]
  - ATRIAL FIBRILLATION [None]
  - CARDIOVASCULAR DISORDER [None]
  - HEART RATE IRREGULAR [None]
  - VASCULAR INJURY [None]
